FAERS Safety Report 4575026-8 (Version None)
Quarter: 2005Q1

REPORT INFORMATION
  Report Type: 
  Country: None (occurrence: None)
  Receive Date: 20050208
  Receipt Date: 20050120
  Transmission Date: 20050727
  Serious: Yes (Hospitalization)
  Sender: FDA-Public Use
  Company Number: NLWYE358421JAN05

PATIENT
  Sex: Female

DRUGS (6)
  1. ENBREL [Suspect]
     Indication: RHEUMATOID ARTHRITIS
     Dosage: UNKNOWN
     Route: 058
     Dates: start: 20031201, end: 20040201
  2. DICLOFENAC [Concomitant]
  3. PREDNISONE [Concomitant]
  4. TRIAMTERENE [Concomitant]
  5. PERINDOPRIL [Concomitant]
  6. ACENOCOUMAROL [Concomitant]

REACTIONS (6)
  - CARDIAC FAILURE [None]
  - DEEP VEIN THROMBOSIS [None]
  - ECCHYMOSIS [None]
  - FATIGUE [None]
  - LUNG DISORDER [None]
  - OEDEMA PERIPHERAL [None]
